FAERS Safety Report 8788276 (Version 2)
Quarter: 2012Q4

REPORT INFORMATION
  Report Type: 
  Country: US (occurrence: US)
  Receive Date: 20120914
  Receipt Date: 20121217
  Transmission Date: 20130627
  Serious: No
  Sender: FDA-Public Use
  Company Number: US-VERTEX PHARMACEUTICAL INC.-AE-2012-011868

PATIENT
  Sex: Male

DRUGS (10)
  1. VX-950 (TELAPREVIR) [Suspect]
     Indication: HEPATITIS C
     Dosage: 750 mg, tid
     Route: 048
     Dates: start: 201208
  2. PEGASYS [Suspect]
     Indication: HEPATITIS C
     Dosage: 180 ?g, qw
     Route: 058
     Dates: start: 201208
  3. RIBASPHERE [Concomitant]
     Indication: HEPATITIS C
     Dosage: 400mg AM 600mg PM
     Route: 048
     Dates: start: 201208
  4. MYLANTA LIQUID [Concomitant]
  5. BEANO [Concomitant]
  6. CVS VITAMIN B-12 [Concomitant]
  7. GAS-X EX-STR [Concomitant]
  8. PEPTO-BISMOL SUSPENSION [Concomitant]
  9. VITAMIN B COMPLEX-VIT C [Concomitant]
  10. PROCRIT                            /00909301/ [Concomitant]

REACTIONS (6)
  - Bone pain [Unknown]
  - Arthralgia [Unknown]
  - Dry mouth [Unknown]
  - Headache [Unknown]
  - Nausea [Unknown]
  - Vomiting [Unknown]
